FAERS Safety Report 18568421 (Version 2)
Quarter: 2020Q4

REPORT INFORMATION
  Report Type: Spontaneous
  Country: US (occurrence: US)
  Receive Date: 20201202
  Receipt Date: 20201209
  Transmission Date: 20210114
  Serious: Yes (Hospitalization, Other)
  Sender: FDA-Public Use
  Company Number: US-MACLEODS PHARMACEUTICALS US LTD-MAC2020029213

PATIENT

DRUGS (12)
  1. CANDESARTAN CILEXETIL 16 MG TABLET [Suspect]
     Active Substance: CANDESARTAN CILEXETIL
     Indication: HYPERTENSION
     Dosage: 16 MILLIGRAM,QD AT NIGHT RIGHT BEFORE BEDTIME, GTIN: 00333342116079
     Route: 048
     Dates: start: 20201103
  2. LOSARTAN. [Suspect]
     Active Substance: LOSARTAN
     Indication: HYPERTENSION
     Dosage: UNK UNK, QD
     Route: 065
     Dates: start: 2006, end: 2006
  3. VITAMIN K2 [Concomitant]
     Active Substance: MENAQUINONE 6
     Indication: PRODUCT USED FOR UNKNOWN INDICATION
     Dosage: UNK
     Route: 065
  4. MAGNESIUM [Concomitant]
     Active Substance: MAGNESIUM
     Indication: PRODUCT USED FOR UNKNOWN INDICATION
     Dosage: UNK
     Route: 065
  5. AMLODIPINE [Suspect]
     Active Substance: AMLODIPINE BESYLATE
     Indication: HYPERTENSION
     Dosage: UNK UNK, QD
     Route: 065
     Dates: start: 2014
  6. VITAMIN C [Concomitant]
     Active Substance: ASCORBIC ACID
     Indication: PRODUCT USED FOR UNKNOWN INDICATION
     Dosage: UNK
     Route: 065
  7. CASCARA SAGRADA [Concomitant]
     Active Substance: FRANGULA PURSHIANA BARK
     Indication: PRODUCT USED FOR UNKNOWN INDICATION
     Dosage: UNK
     Route: 065
  8. CANDESARTAN CILEXETIL 16 MG TABLET [Suspect]
     Active Substance: CANDESARTAN CILEXETIL
     Dosage: 16 MILLIGRAM, QD,AT NIGHT RIGHT BEFORE BEDTIME
     Route: 048
     Dates: start: 20201117
  9. MELATONIN [Concomitant]
     Active Substance: MELATONIN
     Indication: PRODUCT USED FOR UNKNOWN INDICATION
     Dosage: UNK
     Route: 065
  10. ATACAND [Suspect]
     Active Substance: CANDESARTAN CILEXETIL
     Indication: HYPERTENSION
     Dosage: UNK
     Route: 065
     Dates: start: 2015, end: 2019
  11. RABEPRAZOLE SODIUM. [Concomitant]
     Active Substance: RABEPRAZOLE SODIUM
     Indication: PRODUCT USED FOR UNKNOWN INDICATION
     Dosage: UNK
     Route: 065
  12. BLACK SEED [Concomitant]
     Active Substance: UNSPECIFIED INGREDIENT
     Indication: PRODUCT USED FOR UNKNOWN INDICATION
     Dosage: UNK
     Route: 065

REACTIONS (21)
  - Dizziness postural [Recovered/Resolved]
  - Dizziness [Recovered/Resolved]
  - Vein rupture [Recovered/Resolved]
  - Muscle spasms [Recovered/Resolved]
  - Feeling hot [Recovered/Resolved]
  - Fatigue [Recovered/Resolved]
  - Wrong technique in product usage process [Unknown]
  - Eye pain [Recovered/Resolved]
  - Blood magnesium decreased [Recovered/Resolved]
  - Sciatica [Recovered/Resolved]
  - Retinal vein occlusion [Recovered/Resolved]
  - Orthostatic hypotension [Recovered/Resolved]
  - Retinal tear [Recovered/Resolved]
  - Heat exhaustion [Recovered/Resolved]
  - Syncope [Recovered/Resolved]
  - Photosensitivity reaction [Recovered/Resolved]
  - Vertigo [Recovered/Resolved]
  - Dyspnoea [Recovered/Resolved]
  - Product dispensing error [Unknown]
  - Drug ineffective [Recovered/Resolved]
  - Product complaint [Unknown]

NARRATIVE: CASE EVENT DATE: 2006
